FAERS Safety Report 8542151-6 (Version None)
Quarter: 2012Q3

REPORT INFORMATION
  Report Type: 
  Country: None (occurrence: None)
  Receive Date: 20120726
  Receipt Date: 20111014
  Transmission Date: 20120928
  Serious: No
  Sender: FDA-Public Use
  Company Number: US-ASTRAZENECA-2011SE62115

PATIENT
  Age: 57 Year
  Sex: Female
  Weight: 77.1 kg

DRUGS (15)
  1. SYNTHROID [Concomitant]
     Indication: SCHIZOAFFECTIVE DISORDER
  2. SEROQUEL [Suspect]
     Indication: BIPOLAR DISORDER
     Route: 048
     Dates: start: 20010101
  3. SEROQUEL [Suspect]
     Dosage: 100 MG IN THE MORNING AND 300 MG HS
     Route: 048
     Dates: start: 20110101
  4. LITHIUM CARBONATE [Concomitant]
     Indication: SCHIZOAFFECTIVE DISORDER
  5. SEROQUEL [Suspect]
     Indication: SCHIZOAFFECTIVE DISORDER
     Route: 048
     Dates: start: 20010101
  6. SEROQUEL [Suspect]
     Dosage: 100 MG IN THE MORNING AND 300 MG HS
     Route: 048
     Dates: start: 20110101
  7. WELLBUTRIN XL [Concomitant]
     Indication: BIPOLAR DISORDER
  8. WELLBUTRIN XL [Concomitant]
     Indication: SCHIZOAFFECTIVE DISORDER
  9. TEGRETOL [Concomitant]
     Indication: AFFECTIVE DISORDER
  10. SYNTHROID [Concomitant]
     Indication: BIPOLAR DISORDER
  11. SEROQUEL [Suspect]
     Route: 048
     Dates: start: 20010101
  12. TOPIRAMATE [Concomitant]
     Indication: MIGRAINE
  13. PRISTIQ [Concomitant]
     Indication: ANTIDEPRESSANT THERAPY
  14. SEROQUEL [Suspect]
     Route: 048
     Dates: start: 20010101
  15. LITHIUM CARBONATE [Concomitant]
     Indication: BIPOLAR DISORDER

REACTIONS (5)
  - WEIGHT INCREASED [None]
  - PAIN IN EXTREMITY [None]
  - DECREASED APPETITE [None]
  - DYSGEUSIA [None]
  - INCREASED APPETITE [None]
